FAERS Safety Report 12179716 (Version 2)
Quarter: 2016Q2

REPORT INFORMATION
  Report Type: Spontaneous
  Country: US (occurrence: US)
  Receive Date: 20160315
  Receipt Date: 20160419
  Transmission Date: 20160815
  Serious: Yes (Hospitalization)
  Sender: FDA-Public Use
  Company Number: US-BEH-2016059909

PATIENT
  Age: 72 Year
  Sex: Female
  Weight: 60 kg

DRUGS (25)
  1. PANTOPRAZOLE [Concomitant]
     Active Substance: PANTOPRAZOLE SODIUM
  2. METOPROLOL. [Concomitant]
     Active Substance: METOPROLOL
  3. RANEXA [Concomitant]
     Active Substance: RANOLAZINE
  4. NITROGLYCERIN. [Concomitant]
     Active Substance: NITROGLYCERIN
  5. VITAMIN D [Concomitant]
     Active Substance: CHOLECALCIFEROL
  6. ISOSORBIDE. [Concomitant]
     Active Substance: ISOSORBIDE
  7. DIPHENHYDRAMINE. [Concomitant]
     Active Substance: DIPHENHYDRAMINE
  8. GABAPENTIN. [Concomitant]
     Active Substance: GABAPENTIN
  9. NITROGLYCERIN. [Concomitant]
     Active Substance: NITROGLYCERIN
  10. LMX [Concomitant]
     Active Substance: LIDOCAINE
  11. MUPIROCIN. [Concomitant]
     Active Substance: MUPIROCIN
  12. HIZENTRA [Suspect]
     Active Substance: HUMAN IMMUNOGLOBULIN G
     Indication: HYPOGAMMAGLOBULINAEMIA
  13. GLUCOPHAGE [Concomitant]
     Active Substance: METFORMIN HYDROCHLORIDE
  14. HIZENTRA [Suspect]
     Active Substance: HUMAN IMMUNOGLOBULIN G
     Route: 058
     Dates: start: 20140501
  15. CLARITIN [Concomitant]
     Active Substance: LORATADINE
  16. LIDOCAINE. [Concomitant]
     Active Substance: LIDOCAINE
  17. SINGULAIR [Concomitant]
     Active Substance: MONTELUKAST SODIUM
  18. FLUTICASONE [Concomitant]
     Active Substance: FLUTICASONE\FLUTICASONE PROPIONATE
  19. ACETAMINOPHEN. [Concomitant]
     Active Substance: ACETAMINOPHEN
  20. MAGNESIUM [Concomitant]
     Active Substance: MAGNESIUM
  21. VYTORIN [Concomitant]
     Active Substance: EZETIMIBE\SIMVASTATIN
  22. FLONASE [Concomitant]
     Active Substance: FLUTICASONE PROPIONATE
  23. EPIPEN [Concomitant]
     Active Substance: EPINEPHRINE
  24. SYNTHROID [Concomitant]
     Active Substance: LEVOTHYROXINE SODIUM
  25. OXYCONTIN [Concomitant]
     Active Substance: OXYCODONE HYDROCHLORIDE

REACTIONS (3)
  - Pneumonia [Unknown]
  - Sinusitis [Unknown]
  - Sinus operation [Unknown]

NARRATIVE: CASE EVENT DATE: 201602
